FAERS Safety Report 8622516 (Version 4)
Quarter: 2013Q1

REPORT INFORMATION
  Report Type: Spontaneous
  Country: US (occurrence: None)
  Receive Date: 20120523
  Receipt Date: 20121023
  Transmission Date: 20140127
  Serious: Yes (Other)
  Sender: FDA-Public Use
  Company Number: 2011027979

PATIENT
  Age: 47 Year
  Sex: Female
  Weight: 136.08 kg

DRUGS (26)
  1. HIZENTRA [Suspect]
     Indication: HYPOGAMMAGLOBULINAEMIA
     Dosage: INFUSED AS 95 ML IN 4 SITES OVER 1-2 HOURS
     Route: 058
     Dates: start: 20120321, end: 20120321
  2. FOLIC ACID [Concomitant]
  3. CYTOMEL [Concomitant]
  4. PLAQUENIL [Concomitant]
  5. AMBIEN [Concomitant]
  6. XYZAL [Concomitant]
  7. LEVOTHYROXINE SODIUM [Concomitant]
  8. ZOLOFT [Concomitant]
  9. PREDNISONE [Concomitant]
  10. COUMADIN [Concomitant]
  11. WELLBUTRIN [Concomitant]
  12. IMURAN [Concomitant]
  13. OS-CAL D [Concomitant]
  14. METOPROLOL SUCCINATE [Concomitant]
  15. NEXIUM [Concomitant]
  16. SPIRONOLACTONE [Concomitant]
  17. SUPER B COMPLEX [Concomitant]
  18. VITAMIN D [Concomitant]
  19. ZANAFLEX [Concomitant]
  20. QUINACRINE [Concomitant]
  21. ACETAMINOPHEN [Concomitant]
  22. MUCINEX [Concomitant]
  23. DIPHENHYDRAMINE [Concomitant]
  24. EPI-PEN [Concomitant]
  25. NEURONTIN [Concomitant]
  26. KLONOPIN [Concomitant]

REACTIONS (8)
  - Chest discomfort [None]
  - Dyspnoea [None]
  - Infusion site swelling [None]
  - Chills [None]
  - Pyrexia [None]
  - Pruritus generalised [None]
  - Fatigue [None]
  - Energy increased [None]
